FAERS Safety Report 16968088 (Version 1)
Quarter: 2019Q4

REPORT INFORMATION
  Report Type: Spontaneous
  Country: AU (occurrence: AU)
  Receive Date: 20191028
  Receipt Date: 20191028
  Transmission Date: 20200122
  Serious: Yes (Disabling, Other)
  Sender: FDA-Public Use
  Company Number: AU-ALLERGAN-1942868US

PATIENT
  Sex: Female

DRUGS (6)
  1. MILNACIPRAN - BP [Suspect]
     Active Substance: MILNACIPRAN
     Indication: MYALGIA
     Dosage: 50 MG
  2. MILNACIPRAN - BP [Suspect]
     Active Substance: MILNACIPRAN
     Indication: CHRONIC FATIGUE SYNDROME
  3. MILNACIPRAN - BP [Suspect]
     Active Substance: MILNACIPRAN
     Indication: PAIN
  4. MILNACIPRAN - BP [Suspect]
     Active Substance: MILNACIPRAN
     Indication: FIBROMYALGIA
     Dosage: 25 MG, QD
     Dates: start: 20170801
  5. MILNACIPRAN - BP [Suspect]
     Active Substance: MILNACIPRAN
     Indication: BURSITIS
  6. METFORMIN [Concomitant]
     Active Substance: METFORMIN HYDROCHLORIDE
     Dosage: 500 MG

REACTIONS (6)
  - Drug dependence [Not Recovered/Not Resolved]
  - Anxiety [Not Recovered/Not Resolved]
  - Malaise [Unknown]
  - Vomiting [Not Recovered/Not Resolved]
  - Overdose [Unknown]
  - Panic attack [Not Recovered/Not Resolved]
